FAERS Safety Report 21458189 (Version 2)
Quarter: 2022Q4

REPORT INFORMATION
  Report Type: Spontaneous
  Country: US (occurrence: US)
  Receive Date: 20221014
  Receipt Date: 20221031
  Transmission Date: 20230113
  Serious: Yes (Hospitalization, Other)
  Sender: FDA-Public Use
  Company Number: US-drreddys-LIT/USA/22/0155761

PATIENT
  Age: 12 Year
  Sex: Female
  Weight: 54.1 kg

DRUGS (8)
  1. PROPOFOL [Suspect]
     Active Substance: PROPOFOL
     Indication: Maintenance of anaesthesia
     Dosage: TWO ADDITIONAL 50 MG BOLUSES
  2. PROPOFOL [Suspect]
     Active Substance: PROPOFOL
     Dosage: 2, 50 MG BOLUSES
  3. PROPOFOL [Suspect]
     Active Substance: PROPOFOL
     Dosage: 150?200 UG/KG/MIN (TOTAL 2.245GM)
  4. METHADONE [Suspect]
     Active Substance: METHADONE HYDROCHLORIDE
     Indication: Induction of anaesthesia
     Dosage: 0.2 MG/KG
     Route: 042
  5. KETAMINE [Suspect]
     Active Substance: KETAMINE
     Indication: Maintenance of anaesthesia
     Dosage: 15?75 UG/KG/MIN (TOTAL 483MG)
  6. MIDAZOLAM [Suspect]
     Active Substance: MIDAZOLAM
     Indication: Product used for unknown indication
     Dosage: 0.04 MG/KG
     Route: 042
  7. NALOXONE HYDROCHLORIDE [Concomitant]
     Active Substance: NALOXONE HYDROCHLORIDE
     Indication: Product used for unknown indication
  8. NALOXONE HYDROCHLORIDE [Concomitant]
     Active Substance: NALOXONE HYDROCHLORIDE

REACTIONS (4)
  - Unresponsive to stimuli [Recovered/Resolved]
  - Miosis [Recovered/Resolved]
  - Depressed level of consciousness [Recovered/Resolved]
  - Respiratory depression [Recovering/Resolving]
